FAERS Safety Report 6140168-2 (Version None)
Quarter: 2009Q2

REPORT INFORMATION
  Report Type: 
  Country: None (occurrence: None)
  Receive Date: 20090401
  Receipt Date: 20090324
  Transmission Date: 20091009
  Serious: No
  Sender: FDA-Public Use
  Company Number: US-B.I. PHARMACEUTICALS,INC./RIDGEFIELD-2009-BP-03670BP

PATIENT
  Age: 27 Year
  Sex: Female

DRUGS (3)
  1. ZANTAC 150 [Suspect]
     Indication: DYSPEPSIA
     Dosage: 150MG
     Route: 048
     Dates: start: 20090324
  2. CELEXA [Concomitant]
     Indication: DEPRESSION
  3. CELEXA [Concomitant]
     Indication: ANXIETY

REACTIONS (3)
  - ANXIETY [None]
  - AURA [None]
  - PULSE PRESSURE INCREASED [None]
